FAERS Safety Report 6368295-5 (Version None)
Quarter: 2009Q3

REPORT INFORMATION
  Report Type: 
  Country: None (occurrence: None)
  Receive Date: 20090917
  Receipt Date: 20090917
  Transmission Date: 20100115
  Serious: Yes (Hospitalization)
  Sender: FDA-Public Use
  Company Number: None

PATIENT
  Age: 57 Year
  Sex: Female
  Weight: 92.9874 kg

DRUGS (2)
  1. HEPARIN SODIUM [Suspect]
     Indication: ANGINA UNSTABLE
     Dosage: 50 UNITS/ML AT SPECIFIED RATE CONTINOUS IV DRIP
     Route: 041
     Dates: start: 20090821, end: 20090822
  2. HEPARIN SODIUM [Suspect]
     Indication: MYOCARDIAL INFARCTION
     Dosage: 50 UNITS/ML AT SPECIFIED RATE CONTINOUS IV DRIP
     Route: 041
     Dates: start: 20090821, end: 20090822

REACTIONS (1)
  - HEPARIN-INDUCED THROMBOCYTOPENIA [None]
